FAERS Safety Report 5581417-9 (Version None)
Quarter: 2008Q1

REPORT INFORMATION
  Report Type: 
  Country: None (occurrence: None)
  Receive Date: 20080103
  Receipt Date: 20080103
  Transmission Date: 20080703
  Serious: Yes (Other)
  Sender: FDA-Public Use
  Company Number: None

PATIENT
  Age: 3 Year
  Sex: Male
  Weight: 15.8759 kg

DRUGS (1)
  1. ZITHROMAX [Suspect]
     Indication: EAR INFECTION
     Dosage: 5 ML   Q24 HRS  PO
     Route: 048

REACTIONS (3)
  - REACTION TO COLOURING [None]
  - RETCHING [None]
  - SALIVARY HYPERSECRETION [None]
